FAERS Safety Report 7889198-0 (Version None)
Quarter: 2011Q4

REPORT INFORMATION
  Report Type: 
  Country: None (occurrence: None)
  Receive Date: 20111103
  Receipt Date: 20111030
  Transmission Date: 20120403
  Serious: Yes (Other)
  Sender: FDA-Public Use
  Company Number: US-PFIZER INC-2011265073

PATIENT
  Sex: Male
  Weight: 66.667 kg

DRUGS (6)
  1. VICODIN [Concomitant]
     Indication: OSTEOPOROSIS
     Dosage: UNK
  2. ZYPREXA [Concomitant]
     Indication: PSYCHOTIC DISORDER
     Dosage: 5 MG, AS NEEDED
  3. TYLENOL-500 [Concomitant]
     Indication: HEADACHE
     Dosage: 500 MG, AS NEEDED
  4. LITHIUM [Concomitant]
     Indication: BIPOLAR I DISORDER
     Dosage: 100 MG, UNK
  5. ACETYLSALICYLIC ACID [Concomitant]
     Indication: ANTICOAGULANT THERAPY
     Dosage: 81 MG, AS NEEDED
  6. VIAGRA [Suspect]
     Indication: ERECTILE DYSFUNCTION
     Dosage: 100 MG, AS NEEDED
     Route: 048
     Dates: start: 20110301

REACTIONS (2)
  - ERECTION INCREASED [None]
  - TESTICULAR SWELLING [None]
